FAERS Safety Report 5530961-9 (Version None)
Quarter: 2007Q4

REPORT INFORMATION
  Report Type: 
  Country: None (occurrence: None)
  Receive Date: 20071130
  Receipt Date: 20071119
  Transmission Date: 20080405
  Serious: Yes (Hospitalization, Other)
  Sender: FDA-Public Use
  Company Number: DE-PFIZER INC-2007081324

PATIENT
  Sex: Female

DRUGS (1)
  1. CHAMPIX [Suspect]
     Indication: SMOKING CESSATION THERAPY
     Route: 048
     Dates: start: 20070822, end: 20070916

REACTIONS (8)
  - CEREBRAL INFARCTION [None]
  - DEPRESSION [None]
  - HEMIPARESIS [None]
  - HYPERTENSION [None]
  - LEFT VENTRICULAR HYPERTROPHY [None]
  - MICROANGIOPATHY [None]
  - NERVOUS SYSTEM DISORDER [None]
  - SKIN DISORDER [None]
